FAERS Safety Report 7512468-2 (Version None)
Quarter: 2011Q2

REPORT INFORMATION
  Report Type: 
  Country: None (occurrence: None)
  Receive Date: 20110531
  Receipt Date: 20110519
  Transmission Date: 20111010
  Serious: Yes (Other)
  Sender: FDA-Public Use
  Company Number: SE-ASTRAZENECA-2011SE30180

PATIENT
  Sex: Female

DRUGS (2)
  1. MEROPENEM [Suspect]
     Route: 042
  2. CYCLOPHOSPHAMIDE [Suspect]
     Route: 065

REACTIONS (2)
  - RASH ERYTHEMATOUS [None]
  - PANCYTOPENIA [None]
